FAERS Safety Report 8308275-3 (Version None)
Quarter: 2012Q2

REPORT INFORMATION
  Report Type: 
  Country: None (occurrence: None)
  Receive Date: 20120424
  Receipt Date: 20120417
  Transmission Date: 20120825
  Serious: Yes (Death, Hospitalization)
  Sender: FDA-Public Use
  Company Number: US-CELGENEUS-163-21880-09081711

PATIENT
  Sex: Male
  Weight: 58 kg

DRUGS (25)
  1. CYTOXAN [Suspect]
     Indication: AMYLOIDOSIS
     Dosage: 350 MILLIGRAM
     Route: 048
     Dates: start: 20080828, end: 20090810
  2. ALDACTONE [Concomitant]
     Route: 065
  3. LASIX [Concomitant]
     Route: 065
  4. DEXAMETHASONE [Suspect]
     Dosage: 40 MILLIGRAM
     Route: 065
  5. NITROGLYCERIN [Concomitant]
     Indication: CHEST PAIN
     Route: 060
  6. DOBUTAMINE HCL [Concomitant]
     Route: 041
     Dates: start: 20090801
  7. REVLIMID [Suspect]
     Indication: AMYLOIDOSIS
     Dosage: 15 MILLIGRAM
     Route: 048
     Dates: start: 20080828, end: 20090810
  8. RED BLOOD CELLS [Concomitant]
     Dosage: 2 UNITS
     Route: 041
     Dates: start: 20090801
  9. CRESTOR [Concomitant]
     Route: 048
  10. NEUPOGEN [Concomitant]
     Route: 065
     Dates: start: 20090801
  11. COLACE [Concomitant]
     Route: 048
  12. ZETIA [Concomitant]
     Route: 048
  13. CYTOXAN [Suspect]
     Dosage: 300 MILLIGRAM/SQ. METER
     Route: 048
  14. AVASTIN [Suspect]
     Indication: PLEURAL EFFUSION
     Route: 065
  15. ACYCLOVIR [Concomitant]
     Route: 065
     Dates: end: 20090811
  16. ASPIRIN [Concomitant]
     Route: 048
  17. MULTI-VITAMIN [Concomitant]
     Route: 048
  18. PLATELETS [Concomitant]
     Indication: THROMBOCYTOPENIA
     Route: 041
     Dates: start: 20090801, end: 20090801
  19. DEXAMETHASONE [Suspect]
     Indication: AMYLOIDOSIS
     Dosage: 20 MILLIGRAM
     Route: 065
     Dates: start: 20080828, end: 20090810
  20. AMBIEN [Concomitant]
     Route: 048
  21. NEUPOGEN [Concomitant]
     Indication: NEUTROPHIL COUNT DECREASED
  22. BACTRIM [Concomitant]
     Route: 065
     Dates: end: 20090811
  23. XOPENEX HFA [Concomitant]
     Route: 055
  24. ZOSYN [Concomitant]
     Route: 041
     Dates: start: 20090814
  25. PHENYLEPHRINE HCL [Concomitant]
     Indication: BLOOD PRESSURE FLUCTUATION
     Route: 041
     Dates: start: 20090814

REACTIONS (10)
  - SMALL INTESTINAL OBSTRUCTION [None]
  - PULMONARY OEDEMA [None]
  - MULTI-ORGAN FAILURE [None]
  - HYPOTENSION [None]
  - CANDIDA SEPSIS [None]
  - PANCYTOPENIA [None]
  - DEHYDRATION [None]
  - VOMITING [None]
  - NAUSEA [None]
  - PLEURAL EFFUSION [None]
